FAERS Safety Report 9354214 (Version 1)
Quarter: 2013Q2

REPORT INFORMATION
  Report Type: Spontaneous
  Country: FR (occurrence: FR)
  Receive Date: 20130618
  Receipt Date: 20130618
  Transmission Date: 20140414
  Serious: Yes (Hospitalization)
  Sender: FDA-Public Use
  Company Number: FR-TEVA-412969ISR

PATIENT
  Age: 71 Year
  Sex: Male

DRUGS (1)
  1. FUROSEMIDE TEVA 40MG [Suspect]
     Dosage: 40 MILLIGRAM DAILY;
     Route: 048
     Dates: start: 20130605, end: 20130609

REACTIONS (3)
  - Somnolence [Unknown]
  - Depressed level of consciousness [Unknown]
  - Vertigo [Unknown]
